FAERS Safety Report 15028571 (Version 1)
Quarter: 2018Q2

REPORT INFORMATION
  Report Type: Spontaneous
  Country: US (occurrence: US)
  Receive Date: 20180526
  Receipt Date: 20180526
  Transmission Date: 20180711
  Serious: No
  Sender: FDA-Public Use
  Company Number: None

PATIENT
  Age: 59 Year
  Sex: Male

DRUGS (1)
  1. EPCLUSA [Suspect]
     Active Substance: SOFOSBUVIR\VELPATASVIR
     Route: 048

REACTIONS (6)
  - Dyspepsia [None]
  - Musculoskeletal chest pain [None]
  - Hepatic cancer [None]
  - Abdominal pain upper [None]
  - Constipation [None]
  - Gallbladder disorder [None]

NARRATIVE: CASE EVENT DATE: 20180430
